FAERS Safety Report 4815142-6 (Version None)
Quarter: 2005Q4

REPORT INFORMATION
  Report Type: 
  Country: None (occurrence: None)
  Receive Date: 20051026
  Receipt Date: 20051018
  Transmission Date: 20060501
  Serious: Yes (Hospitalization)
  Sender: FDA-Public Use
  Company Number: ST-2005-008532

PATIENT
  Age: 66 Year
  Sex: Male
  Weight: 51 kg

DRUGS (4)
  1. OLMETEC [Suspect]
     Indication: HYPERTENSION
     Dosage: 20 MG QD PO
     Route: 048
     Dates: start: 20050616, end: 20050722
  2. ZANTAC [Suspect]
     Indication: GASTRIC ULCER
     Dosage: 150 MG QD PO
     Route: 048
     Dates: start: 20050616, end: 20050722
  3. PLETAL [Concomitant]
  4. CALBLOCK [Concomitant]

REACTIONS (8)
  - APHTHOUS STOMATITIS [None]
  - ENANTHEMA [None]
  - ERYTHEMA [None]
  - HENOCH-SCHONLEIN PURPURA [None]
  - MOUTH ULCERATION [None]
  - ORAL INTAKE REDUCED [None]
  - PYREXIA [None]
  - RASH [None]
